FAERS Safety Report 11294625 (Version 1)
Quarter: 2015Q2

REPORT INFORMATION
  Report Type: Spontaneous
  Country: US (occurrence: None)
  Receive Date: 20150623
  Receipt Date: 20150623
  Transmission Date: 20150821
  Serious: Yes (Other)
  Sender: FDA-Public Use
  Company Number: RB-76776-2015

PATIENT
  Age: 71 Year
  Sex: Female

DRUGS (4)
  1. MUCINEX DM [Suspect]
     Active Substance: DEXTROMETHORPHAN HYDROBROMIDE\GUAIFENESIN
     Indication: PRODUCT USED FOR UNKNOWN INDICATION
     Dates: start: 20150422
  2. STEROID CREME DOSING REGIMEN [Concomitant]
  3. DELSYM [Suspect]
     Active Substance: DEXTROMETHORPHAN
     Indication: PRODUCT USED FOR UNKNOWN INDICATION
     Route: 048
     Dates: start: 20150422
  4. GLAUCOMA EYE DROPS [Concomitant]

REACTIONS (3)
  - Inappropriate schedule of drug administration [None]
  - Central nervous system stimulation [None]
  - Insomnia [None]

NARRATIVE: CASE EVENT DATE: 20150422
